FAERS Safety Report 8330423-X (Version None)
Quarter: 2012Q2

REPORT INFORMATION
  Report Type: 
  Country: None (occurrence: None)
  Receive Date: 20120502
  Receipt Date: 20120426
  Transmission Date: 20120825
  Serious: Yes (Hospitalization)
  Sender: FDA-Public Use
  Company Number: US-GILEAD-2012-0053766

PATIENT
  Sex: Male

DRUGS (14)
  1. LOSARTAN POTASSIUM [Concomitant]
  2. ZOCOR [Concomitant]
  3. AMBIEN [Concomitant]
  4. REVATIO [Concomitant]
  5. LETAIRIS [Suspect]
     Indication: PULMONARY HYPERTENSION
     Dosage: 5 MG, UNK
     Route: 048
     Dates: start: 20120105
  6. SYNTHROID [Concomitant]
  7. COLACE [Concomitant]
  8. ASPIRIN [Concomitant]
  9. METFORMIN HCL [Concomitant]
  10. PRISTIQ [Concomitant]
  11. LISINOPRIL [Concomitant]
  12. OMEPRAZOLE [Concomitant]
  13. TRICOR [Concomitant]
  14. XANAX [Concomitant]

REACTIONS (1)
  - CARDIAC OPERATION [None]
